FAERS Safety Report 11692380 (Version 1)
Quarter: 2015Q4

REPORT INFORMATION
  Report Type: Spontaneous
  Country: US (occurrence: None)
  Receive Date: 20151102
  Receipt Date: 20151102
  Transmission Date: 20160304
  Serious: No
  Sender: FDA-Public Use
  Company Number: None

PATIENT
  Age: 45 Year
  Sex: Female

DRUGS (6)
  1. SUTENT [Suspect]
     Active Substance: SUNITINIB MALATE
     Indication: SOFT TISSUE SARCOMA
     Route: 048
     Dates: start: 20151001
  2. ESTAZOLAM. [Concomitant]
     Active Substance: ESTAZOLAM
  3. FENTANYL. [Concomitant]
     Active Substance: FENTANYL
  4. ZOLPIDEM [Concomitant]
     Active Substance: ZOLPIDEM\ZOLPIDEM TARTRATE
  5. URSODIOL. [Concomitant]
     Active Substance: URSODIOL
  6. OXYCODONE [Concomitant]
     Active Substance: OXYCODONE

REACTIONS (2)
  - Transfusion [None]
  - Drug dose omission [None]

NARRATIVE: CASE EVENT DATE: 201510
